FAERS Safety Report 19267810 (Version 1)
Quarter: 2021Q2

REPORT INFORMATION
  Report Type: Spontaneous
  Country: US (occurrence: US)
  Receive Date: 20210518
  Receipt Date: 20210518
  Transmission Date: 20210717
  Serious: No
  Sender: FDA-Public Use
  Company Number: US-CIPLA LTD.-2021US01590

PATIENT

DRUGS (2)
  1. DICLOFENAC [Suspect]
     Active Substance: DICLOFENAC
     Indication: PLANTAR FASCIITIS
     Dosage: 2 GRAM, TID
     Route: 061
     Dates: start: 20210222, end: 2021
  2. DICLOFENAC [Suspect]
     Active Substance: DICLOFENAC
     Dosage: 4 GRAM, BID
     Route: 061
     Dates: start: 2021

REACTIONS (3)
  - Off label use [Unknown]
  - Drug ineffective for unapproved indication [Unknown]
  - Therapeutic response unexpected [Unknown]

NARRATIVE: CASE EVENT DATE: 2021
